FAERS Safety Report 13038286 (Version 1)
Quarter: 2016Q4

REPORT INFORMATION
  Report Type: Report from Study
  Country: None (occurrence: US)
  Receive Date: 20161219
  Receipt Date: 20161219
  Transmission Date: 20170207
  Serious: No
  Sender: FDA-Public Use
  Company Number: US-BIOVITRUM-2015US0354

PATIENT
  Age: 42 Year
  Sex: Female

DRUGS (1)
  1. KINERET [Suspect]
     Active Substance: ANAKINRA
     Indication: OSTEOMYELITIS CHRONIC
     Route: 058
     Dates: start: 20150610

REACTIONS (2)
  - Oropharyngeal pain [Recovering/Resolving]
  - Faeces soft [Recovering/Resolving]

NARRATIVE: CASE EVENT DATE: 20150611
